FAERS Safety Report 16451455 (Version 1)
Quarter: 2019Q2

REPORT INFORMATION
  Report Type: Spontaneous
  Country: AT (occurrence: AT)
  Receive Date: 20190619
  Receipt Date: 20190619
  Transmission Date: 20190711
  Serious: Yes (Life-Threatening, Other)
  Sender: FDA-Public Use
  Company Number: AT-TEVA-2019-AT-1063962

PATIENT
  Age: 51 Year
  Sex: Male

DRUGS (2)
  1. BRIDION [Suspect]
     Active Substance: SUGAMMADEX
     Dates: start: 20181011, end: 20181011
  2. DICLOBENE 75 MG - AMPULLEN [Suspect]
     Active Substance: DICLOFENAC SODIUM
     Route: 042
     Dates: start: 20181011, end: 20181011

REACTIONS (2)
  - Type I hypersensitivity [Recovered/Resolved]
  - Cardiac arrest [Recovered/Resolved]

NARRATIVE: CASE EVENT DATE: 20181011
